FAERS Safety Report 20797413 (Version 4)
Quarter: 2023Q1

REPORT INFORMATION
  Report Type: Report from Study
  Country: US (occurrence: US)
  Receive Date: 20220506
  Receipt Date: 20230224
  Transmission Date: 20230418
  Serious: No
  Sender: FDA-Public Use
  Company Number: US-NOVARTISTESTPH-NVSC2022US103995

PATIENT
  Age: 12 Year
  Sex: Female

DRUGS (5)
  1. ILARIS [Suspect]
     Active Substance: CANAKINUMAB
     Indication: Cryopyrin associated periodic syndrome
     Dosage: 0.3 ML, OTHER, EVERY 8 WEEKS
     Route: 058
     Dates: start: 20220302
  2. ILARIS [Suspect]
     Active Substance: CANAKINUMAB
     Dosage: 0.3 ML, EVERY 4 WEEKS
     Route: 058
  3. ILARIS [Suspect]
     Active Substance: CANAKINUMAB
     Dosage: 48.4 MG, OTHER, EVERY 4 WEEKS
     Route: 058
     Dates: start: 20220322
  4. ILARIS [Suspect]
     Active Substance: CANAKINUMAB
     Dosage: 0.3 ML, OTHER, EVERY 4 WEEKS
     Route: 058
  5. ILARIS [Suspect]
     Active Substance: CANAKINUMAB
     Dosage: UNK
     Route: 065
     Dates: start: 20230125

REACTIONS (3)
  - Pain [Unknown]
  - Abdominal pain [Unknown]
  - Inappropriate schedule of product administration [Unknown]

NARRATIVE: CASE EVENT DATE: 20220504
